FAERS Safety Report 7638504-0 (Version None)
Quarter: 2011Q3

REPORT INFORMATION
  Report Type: 
  Country: None (occurrence: None)
  Receive Date: 20110727
  Receipt Date: 20110715
  Transmission Date: 20111222
  Serious: Yes (Other)
  Sender: FDA-Public Use
  Company Number: PHHY2010AU74738

PATIENT
  Sex: Male

DRUGS (1)
  1. CLOZARIL [Suspect]
     Dosage: 300 MG
     Dates: start: 20060403, end: 20061114

REACTIONS (4)
  - WHITE BLOOD CELL COUNT DECREASED [None]
  - HEPATITIS C [None]
  - PANCYTOPENIA [None]
  - NEUTROPHIL COUNT DECREASED [None]
